FAERS Safety Report 5565102-5 (Version None)
Quarter: 2007Q4

REPORT INFORMATION
  Report Type: 
  Country: None (occurrence: None)
  Receive Date: 20071218
  Receipt Date: 20071218
  Transmission Date: 20080405
  Serious: Yes (Death, Other)
  Sender: FDA-Public Use
  Company Number: PHHO2007DK06512

PATIENT
  Age: 72 Year
  Sex: Male

DRUGS (3)
  1. CALCIUM CARBONATE [Concomitant]
     Indication: OSTEOPOROTIC FRACTURE
  2. VITAMIN D [Concomitant]
     Indication: OSTEOPOROTIC FRACTURE
  3. ZOLEDRONIC ACID [Suspect]
     Indication: OSTEOPOROTIC FRACTURE
     Dosage: DOUBLE BLINDED
     Route: 042
     Dates: start: 20030901

REACTIONS (1)
  - PNEUMONIA [None]
